FAERS Safety Report 4860772-9 (Version None)
Quarter: 2005Q4

REPORT INFORMATION
  Report Type: 
  Country: None (occurrence: None)
  Receive Date: 20051220
  Receipt Date: 20051212
  Transmission Date: 20060501
  Serious: Yes (Death, Life-Threatening, Other)
  Sender: FDA-Public Use
  Company Number: 2005AC01948

PATIENT
  Age: 75 Year
  Sex: Male

DRUGS (2)
  1. IRESSA [Suspect]
     Indication: LUNG SQUAMOUS CELL CARCINOMA STAGE UNSPECIFIED
     Route: 048
     Dates: start: 20031001, end: 20040101
  2. PACLITAXEL [Concomitant]
     Indication: LUNG SQUAMOUS CELL CARCINOMA STAGE UNSPECIFIED
     Dates: start: 20030101

REACTIONS (4)
  - AZOTAEMIA [None]
  - CARDIO-RESPIRATORY ARREST [None]
  - RASH [None]
  - RENAL FAILURE [None]
